FAERS Safety Report 6512202-9 (Version None)
Quarter: 2009Q4

REPORT INFORMATION
  Report Type: 
  Country: None (occurrence: None)
  Receive Date: 20091222
  Receipt Date: 20090723
  Transmission Date: 20100525
  Serious: No
  Sender: FDA-Public Use
  Company Number: US-ASTRAZENECA-2009UW21113

PATIENT
  Age: 72 Year
  Sex: Female

DRUGS (5)
  1. CRESTOR [Suspect]
     Indication: BLOOD CHOLESTEROL
     Dosage: HALF OF A 5 MG TABLET
     Route: 048
  2. BENICAR [Concomitant]
  3. PREVACID [Concomitant]
  4. VITAMIN D [Concomitant]
  5. FISH OIL [Concomitant]

REACTIONS (1)
  - SOMNOLENCE [None]
